FAERS Safety Report 10033856 (Version 2)
Quarter: 2014Q2

REPORT INFORMATION
  Report Type: Spontaneous
  Country: BE (occurrence: BE)
  Receive Date: 20140325
  Receipt Date: 20140425
  Transmission Date: 20141212
  Serious: Yes (Hospitalization, Other)
  Sender: FDA-Public Use
  Company Number: BE-AMGEN-BELSP2014020561

PATIENT
  Age: 26 Year
  Sex: Male
  Weight: 74 kg

DRUGS (1)
  1. ENBREL [Suspect]
     Indication: PSORIASIS
     Dosage: 50 MG, QWK
     Route: 058
     Dates: start: 201305, end: 201312

REACTIONS (6)
  - Vasculitis gastrointestinal [Recovered/Resolved]
  - Erosive duodenitis [Recovered/Resolved]
  - Duodenitis [Recovered/Resolved]
  - Thrombocytosis [Unknown]
  - Folate deficiency [Unknown]
  - Hypovitaminosis [Unknown]
